FAERS Safety Report 7357982-8 (Version None)
Quarter: 2011Q1

REPORT INFORMATION
  Report Type: 
  Country: None (occurrence: None)
  Receive Date: 20110317
  Receipt Date: 20110315
  Transmission Date: 20110831
  Serious: Yes (Other)
  Sender: FDA-Public Use
  Company Number: US-PFIZER INC-2011056636

PATIENT
  Sex: Female
  Weight: 87 kg

DRUGS (6)
  1. CHANTIX [Suspect]
     Dosage: 1 MG, 2X/DAY
     Dates: start: 20110101
  2. LOTREL [Concomitant]
     Indication: HYPERTENSION
     Dosage: 10/20 MG
  3. METFORMIN [Concomitant]
     Indication: TYPE 2 DIABETES MELLITUS
     Dosage: 500 MG, 2X/DAY
  4. EFFEXOR [Suspect]
     Indication: DEPRESSION
     Dosage: UNK
  5. CHANTIX [Suspect]
     Indication: SMOKING CESSATION THERAPY
     Dosage: 0.5 MG, 1X/DAY
     Route: 048
     Dates: start: 20080701
  6. KLONOPIN [Concomitant]
     Indication: SLEEP DISORDER
     Dosage: 2 MG, AS NEEDED

REACTIONS (4)
  - DEPRESSION [None]
  - SELF ESTEEM DECREASED [None]
  - APATHY [None]
  - EMOTIONAL DISORDER [None]
